FAERS Safety Report 7042608-3 (Version None)
Quarter: 2010Q4

REPORT INFORMATION
  Report Type: 
  Country: None (occurrence: None)
  Receive Date: 20101007
  Receipt Date: 20100920
  Transmission Date: 20110411
  Serious: Yes (Hospitalization)
  Sender: FDA-Public Use
  Company Number: JPI-P-012313

PATIENT
  Age: 38 Year
  Sex: Female
  Weight: 97.5234 kg

DRUGS (14)
  1. XYREM [Suspect]
     Indication: CATAPLEXY
     Dosage: SEE IMAGE
     Route: 048
     Dates: start: 20080503, end: 20080101
  2. XYREM [Suspect]
     Indication: CATAPLEXY
     Dosage: SEE IMAGE
     Route: 048
     Dates: end: 20100901
  3. XYREM [Suspect]
     Indication: CATAPLEXY
     Dosage: SEE IMAGE
     Route: 048
     Dates: start: 20080101
  4. XYREM [Suspect]
     Indication: CATAPLEXY
     Dosage: SEE IMAGE
     Route: 048
     Dates: start: 20080407
  5. XYREM [Suspect]
     Indication: CATAPLEXY
     Dosage: SEE IMAGE
     Route: 048
     Dates: start: 20100901
  6. VENLAFAXINE (UNKNOWN) [Concomitant]
  7. MODAFINIL [Concomitant]
  8. CITALOPRAM HYDROBROMIDE [Concomitant]
  9. LAMOTRIGINE [Concomitant]
  10. PROMETHAZINE [Concomitant]
  11. IBUPROFEN [Concomitant]
  12. ACETAMINOPHEN [Concomitant]
  13. MAGNESIUM HYDROXIDE [Concomitant]
  14. ALUMINUM MAGNESIUM HYDROXIDE/SIMETHICONE [Concomitant]

REACTIONS (10)
  - AGGRESSION [None]
  - APHASIA [None]
  - FATIGUE [None]
  - FEELING JITTERY [None]
  - HALLUCINATION [None]
  - HEADACHE [None]
  - NAUSEA [None]
  - PARALYSIS [None]
  - PHYSICAL ASSAULT [None]
  - STRESS [None]
